FAERS Safety Report 19925167 (Version 1)
Quarter: 2021Q4

REPORT INFORMATION
  Report Type: Spontaneous
  Country: RU (occurrence: RU)
  Receive Date: 20211006
  Receipt Date: 20211006
  Transmission Date: 20220303
  Serious: Yes (Hospitalization)
  Sender: FDA-Public Use
  Company Number: RU-COLLEGIUM PHARMACEUTICAL, INC.-2021CGM01081

PATIENT
  Age: 72 Year
  Sex: Female

DRUGS (1)
  1. TAPENTADOL [Suspect]
     Active Substance: TAPENTADOL
     Indication: Pain
     Dosage: 100 MG, 2X/DAY
     Route: 048
     Dates: start: 20210901, end: 20210903

REACTIONS (1)
  - Cholecystitis acute [Recovered/Resolved]

NARRATIVE: CASE EVENT DATE: 20210903
